FAERS Safety Report 16288052 (Version 1)
Quarter: 2019Q2

REPORT INFORMATION
  Report Type: Spontaneous
  Country: US (occurrence: US)
  Receive Date: 20190508
  Receipt Date: 20190508
  Transmission Date: 20190711
  Serious: No
  Sender: FDA-Public Use
  Company Number: PHEH2019US019451

PATIENT
  Sex: Female

DRUGS (2)
  1. HALOPERIDOL SANDOZ [Suspect]
     Active Substance: HALOPERIDOL
     Indication: INSOMNIA
     Dosage: 5 MG, UNK
     Route: 065
  2. HALOPERIDOL SANDOZ [Suspect]
     Active Substance: HALOPERIDOL
     Indication: SOMNOLENCE
     Dosage: 7.5 MG, UNK
     Route: 065

REACTIONS (1)
  - Drug ineffective [Unknown]
